FAERS Safety Report 9879602 (Version 2)
Quarter: 2014Q2

REPORT INFORMATION
  Report Type: Spontaneous
  Country: US (occurrence: US)
  Receive Date: 20140206
  Receipt Date: 20140418
  Transmission Date: 20141212
  Serious: Yes (Other)
  Sender: FDA-Public Use
  Company Number: US-RB-063198-14

PATIENT
  Age: 19 Year
  Sex: Female
  Weight: 54 kg

DRUGS (8)
  1. SUBUTEX [Suspect]
     Indication: DRUG DEPENDENCE
     Dosage: TAKING VARIOUS DOSES (3-4 TABLETS) DAILY
     Route: 060
     Dates: start: 2004, end: 200709
  2. SUBOXONE TABLET [Suspect]
     Dosage: TAKING VARIOUS DOSES (3-4 TABLETS) DAILY
     Route: 060
     Dates: start: 2004
  3. SUBOXONE TABLET [Suspect]
     Indication: DRUG DEPENDENCE
     Dosage: 8 MG IN THE MORNING AND 8 MG IN THE EVENING.
     Route: 060
     Dates: start: 200612, end: 200709
  4. DILAUDID [Suspect]
     Indication: PRODUCT USED FOR UNKNOWN INDICATION
     Dosage: DOSING DETAILS UNKNOWN
     Route: 065
     Dates: start: 2000, end: 200703
  5. MORPHINE [Suspect]
     Indication: PRODUCT USED FOR UNKNOWN INDICATION
     Dosage: DOSING DETAILS UNKNOWN
     Route: 065
     Dates: start: 2000, end: 200703
  6. PRENATAL VITAMIN [Concomitant]
     Indication: PRODUCT USED FOR UNKNOWN INDICATION
     Route: 065
     Dates: start: 200703, end: 200705
  7. IRON SUPPLEMENT [Concomitant]
     Indication: ANAEMIA OF PREGNANCY
     Dosage: FURTHER DOSING DETAILS UNKNOWN
     Route: 065
     Dates: start: 200703, end: 200705
  8. NICOTINE [Concomitant]
     Indication: PRODUCT USED FOR UNKNOWN INDICATION
     Dosage: SMOKING 10 CIGARETTES DAILY
     Route: 055
     Dates: start: 2002

REACTIONS (8)
  - Substance abuse [Recovered/Resolved]
  - Drug abuse [Recovered/Resolved]
  - Maternal exposure during pregnancy [Recovered/Resolved]
  - Exposure via father [Recovered/Resolved]
  - Anaemia of pregnancy [Recovered/Resolved]
  - Foetal death [Recovered/Resolved]
  - Gestational hypertension [Recovered/Resolved]
  - Premature delivery [Recovered/Resolved]
